FAERS Safety Report 20116029 (Version 1)
Quarter: 2021Q4

REPORT INFORMATION
  Report Type: Spontaneous
  Country: DE (occurrence: DE)
  Receive Date: 20211126
  Receipt Date: 20211126
  Transmission Date: 20220303
  Serious: Yes (Death, Other)
  Sender: FDA-Public Use
  Company Number: DE-AMGEN-DEUSP2021184015

PATIENT

DRUGS (5)
  1. NEUPOGEN [Suspect]
     Active Substance: FILGRASTIM
     Indication: Prophylaxis
     Dosage: UNK
     Route: 065
  2. RIBOFOLIN [Concomitant]
     Indication: Colorectal cancer
     Dosage: 200 MILLIGRAM/SQ. METER
     Route: 065
  3. RIBOFOLIN [Concomitant]
     Indication: Metastases to liver
  4. FLUOROURACIL [Concomitant]
     Active Substance: FLUOROURACIL
     Indication: Metastases to liver
     Dosage: 750 MILLIGRAM/SQ. METER
     Route: 014
  5. FLUOROURACIL [Concomitant]
     Active Substance: FLUOROURACIL
     Indication: Colorectal cancer

REACTIONS (2)
  - Death [Fatal]
  - Colorectal cancer metastatic [Unknown]
